FAERS Safety Report 6248506-7 (Version None)
Quarter: 2009Q2

REPORT INFORMATION
  Report Type: 
  Country: None (occurrence: None)
  Receive Date: 20090629
  Receipt Date: 20090625
  Transmission Date: 20091009
  Serious: Yes (Death)
  Sender: FDA-Public Use
  Company Number: AT-ROCHE-640199

PATIENT
  Age: 47 Year
  Sex: Male
  Weight: 110 kg

DRUGS (2)
  1. XELODA [Suspect]
     Route: 048
     Dates: start: 20090527, end: 20090602
  2. MEVIR [Suspect]
     Route: 048
     Dates: start: 20090529, end: 20090601

REACTIONS (5)
  - NEUTROPENIA [None]
  - RESPIRATORY FAILURE [None]
  - SEPSIS [None]
  - THROMBOCYTOPENIA [None]
  - TOXIC EPIDERMAL NECROLYSIS [None]
